FAERS Safety Report 9285143 (Version 1)
Quarter: 2013Q2

REPORT INFORMATION
  Report Type: Spontaneous
  Country: US (occurrence: US)
  Receive Date: 20130513
  Receipt Date: 20130513
  Transmission Date: 20140414
  Serious: No
  Sender: FDA-Public Use
  Company Number: US-009507513-1305USA002572

PATIENT
  Age: 74 Year
  Sex: Female

DRUGS (5)
  1. JANUMET XR [Suspect]
     Indication: DIABETES MELLITUS
     Dosage: 50/1000 MG, QAM
     Route: 048
     Dates: start: 20130501
  2. JANUMET XR [Suspect]
     Dosage: 50/1000 MG, QAM
     Route: 048
     Dates: start: 20130501
  3. COZAAR [Concomitant]
  4. LIPITOR [Concomitant]
  5. JANUMET [Suspect]
     Route: 048

REACTIONS (4)
  - Blood glucose increased [Not Recovered/Not Resolved]
  - Increased appetite [Not Recovered/Not Resolved]
  - Abdominal distension [Unknown]
  - Flatulence [Unknown]
